FAERS Safety Report 12748674 (Version 1)
Quarter: 2016Q3

REPORT INFORMATION
  Report Type: Spontaneous
  Country: US (occurrence: US)
  Receive Date: 20160915
  Receipt Date: 20160915
  Transmission Date: 20161109
  Serious: No
  Sender: FDA-Public Use
  Company Number: US-ASTELLAS-2016US009639

PATIENT
  Age: 64 Year
  Sex: Male

DRUGS (1)
  1. XTANDI [Suspect]
     Active Substance: ENZALUTAMIDE
     Indication: PROSTATE CANCER METASTATIC
     Route: 065
     Dates: start: 201602

REACTIONS (11)
  - Dizziness [Unknown]
  - Renal impairment [Unknown]
  - Irregular breathing [Unknown]
  - Hot flush [Unknown]
  - Loss of consciousness [Unknown]
  - Somnolence [Unknown]
  - Asthenia [Unknown]
  - Blood creatinine increased [Unknown]
  - Glomerular filtration rate decreased [Unknown]
  - Blood pressure increased [Unknown]
  - Blood urine present [Unknown]

NARRATIVE: CASE EVENT DATE: 201603
